FAERS Safety Report 16462170 (Version 1)
Quarter: 2019Q2

REPORT INFORMATION
  Report Type: Spontaneous
  Country: CN (occurrence: CN)
  Receive Date: 20190621
  Receipt Date: 20190621
  Transmission Date: 20190711
  Serious: Yes (Other)
  Sender: FDA-Public Use
  Company Number: PHHY2019CN141357

PATIENT
  Age: 27 Year
  Sex: Female
  Weight: 75 kg

DRUGS (1)
  1. PREDNISONE. [Suspect]
     Active Substance: PREDNISONE
     Indication: 17-ALPHA-HYDROXYLASE DEFICIENCY
     Dosage: 5 MG, QD
     Route: 065

REACTIONS (3)
  - Blood pressure increased [Unknown]
  - Drug ineffective for unapproved indication [Unknown]
  - Hypokalaemia [Not Recovered/Not Resolved]
